FAERS Safety Report 5140608-1 (Version None)
Quarter: 2006Q4

REPORT INFORMATION
  Report Type: 
  Country: None (occurrence: None)
  Receive Date: 20061024
  Receipt Date: 20061004
  Transmission Date: 20070319
  Serious: Yes (Hospitalization)
  Sender: FDA-Public Use
  Company Number: IT200610001703

PATIENT
  Age: 63 Year
  Sex: Female

DRUGS (5)
  1. ALIMTA [Suspect]
     Indication: NON-SMALL CELL LUNG CANCER
     Dosage: 500 MG/M2, OTHER, INTRAVENOUS
     Route: 042
     Dates: start: 20060201, end: 20060801
  2. CORTISONE ACETATE [Concomitant]
  3. DOBETIN (CYANOCOBALAMIN) [Concomitant]
  4. FOLIC ACID [Concomitant]
  5. EUTIROX (LEVOTHYROXINE) [Concomitant]

REACTIONS (2)
  - PULMONARY OEDEMA [None]
  - RENAL FAILURE [None]
